FAERS Safety Report 14691284 (Version 1)
Quarter: 2018Q1

REPORT INFORMATION
  Report Type: Spontaneous
  Country: US (occurrence: US)
  Receive Date: 20180327
  Receipt Date: 20180327
  Transmission Date: 20180509
  Serious: No
  Sender: FDA-Public Use
  Company Number: None

PATIENT
  Age: 64 Year
  Sex: Female

DRUGS (1)
  1. SUTENT [Suspect]
     Active Substance: SUNITINIB MALATE
     Indication: RENAL CANCER
     Dosage: 1 CAPSULE (25MG) ONCE DAILY AT THE SAME TIME FOR 2 WEEKS ON, THEN 1 BY MOUTH
     Route: 048
     Dates: start: 20170502

REACTIONS (1)
  - Blood urine present [None]

NARRATIVE: CASE EVENT DATE: 20180322
